FAERS Safety Report 4837404-9 (Version None)
Quarter: 2005Q4

REPORT INFORMATION
  Report Type: 
  Country: None (occurrence: None)
  Receive Date: 20051122
  Receipt Date: 20051109
  Transmission Date: 20060501
  Serious: Yes (Hospitalization)
  Sender: FDA-Public Use
  Company Number: DSA_27384_2005

PATIENT
  Age: 56 Year
  Sex: Female

DRUGS (6)
  1. TAVOR [Suspect]
     Dosage: 1.25 MG Q DAY
     Dates: start: 19990715
  2. EDRONAX [Suspect]
     Dosage: 8 MG Q DAY
     Dates: start: 19990809, end: 19990820
  3. EDRONAX [Suspect]
     Dosage: 4 MG Q DAY
     Dates: start: 19990522, end: 19990808
  4. RISPERDAL [Suspect]
     Dosage: DF
     Dates: start: 19990715
  5. DETROL [Concomitant]
  6. DECORTIN-H [Concomitant]

REACTIONS (3)
  - SUPRAVENTRICULAR EXTRASYSTOLES [None]
  - TACHYCARDIA [None]
  - VENTRICULAR EXTRASYSTOLES [None]
